FAERS Safety Report 15313658 (Version 1)
Quarter: 2018Q3

REPORT INFORMATION
  Report Type: Spontaneous
  Country: FR (occurrence: FR)
  Receive Date: 20180824
  Receipt Date: 20180824
  Transmission Date: 20181010
  Serious: Yes (Life-Threatening)
  Sender: FDA-Public Use
  Company Number: FR-TEVA-2018-FR-946637

PATIENT
  Age: 84 Year
  Sex: Female
  Weight: 67 kg

DRUGS (14)
  1. REPAGLINIDE. [Suspect]
     Active Substance: REPAGLINIDE
     Indication: TYPE 2 DIABETES MELLITUS
     Dosage: 6 MILLIGRAM DAILY;
     Route: 048
     Dates: end: 201806
  2. METFORMINE [Suspect]
     Active Substance: METFORMIN HYDROCHLORIDE
     Indication: TYPE 2 DIABETES MELLITUS
     Dosage: 2550 MILLIGRAM DAILY;
     Route: 048
     Dates: end: 20180616
  3. BISOPROLOL (HEMIFUMARATE DE) [Suspect]
     Active Substance: BISOPROLOL FUMARATE
     Indication: CARDIAC FAILURE
     Dosage: 1.25 MILLIGRAM DAILY;
     Route: 048
     Dates: end: 201806
  4. LEVOTHYROX 175 MICROGRAMMES, COMPRIM? S?CABLE [Concomitant]
     Active Substance: LEVOTHYROXINE SODIUM
     Route: 065
  5. PERINDOPRIL [Suspect]
     Active Substance: PERINDOPRIL
     Indication: HYPERTENSION
     Dosage: 4 MILLIGRAM DAILY;
     Route: 048
     Dates: end: 201806
  6. IMOVANE [Concomitant]
     Active Substance: ZOPICLONE
     Route: 065
  7. LANSOPRAZOLE. [Concomitant]
     Active Substance: LANSOPRAZOLE
     Route: 065
  8. SERESTA 50 MG, COMPRIM? S?CABLE [Concomitant]
     Active Substance: OXAZEPAM
     Route: 065
  9. LASILIX SPECIAL 500 MG, COMPRIM? S?CABLE [Suspect]
     Active Substance: FUROSEMIDE
     Indication: CARDIAC FAILURE
     Dosage: 125 MILLIGRAM DAILY;
     Route: 048
  10. PREVISCAN 20 MG, COMPRIM? S?CABLE [Suspect]
     Active Substance: FLUINDIONE
     Indication: THROMBOSIS PROPHYLAXIS
     Dosage: .5 DOSAGE FORMS DAILY;
     Route: 048
     Dates: end: 201806
  11. ALDACTONE [Suspect]
     Active Substance: SPIRONOLACTONE
     Indication: HYPERTENSION
     Dosage: 1 DOSAGE FORMS DAILY;
     Route: 048
     Dates: end: 201806
  12. HEMIGOXINE NATIVELLE 0,125 MG, COMPRIM? [Suspect]
     Active Substance: DIGOXIN
     Indication: CARDIAC FAILURE
     Dosage: 1 DOSAGE FORMS DAILY;
     Route: 048
     Dates: end: 201806
  13. LANTUS [Concomitant]
     Active Substance: INSULIN GLARGINE
     Route: 065
  14. SIMVASTATINE [Concomitant]
     Active Substance: SIMVASTATIN
     Route: 065

REACTIONS (1)
  - Lactic acidosis [Recovered/Resolved]

NARRATIVE: CASE EVENT DATE: 20180616
